FAERS Safety Report 16425951 (Version 1)
Quarter: 2019Q2

REPORT INFORMATION
  Report Type: Spontaneous
  Country: ES (occurrence: ES)
  Receive Date: 20190613
  Receipt Date: 20190613
  Transmission Date: 20190711
  Serious: Yes (Other)
  Sender: FDA-Public Use
  Company Number: PHHY2019ES133230

PATIENT
  Sex: Male
  Weight: 75 kg

DRUGS (1)
  1. COLIRCUSI CICLOPLEJICO [Suspect]
     Active Substance: CYCLOPENTOLATE HYDROCHLORIDE
     Indication: DIAGNOSTIC PROCEDURE
     Dosage: 4 TOTAL, QH (1 GOTA CADA 15 MINUTOS EN 4 OCASIONES ANTES DE PRUEBA)
     Route: 047
     Dates: start: 20190517

REACTIONS (4)
  - Dizziness [Not Recovered/Not Resolved]
  - Nausea [Not Recovered/Not Resolved]
  - Dry mouth [Not Recovered/Not Resolved]
  - Mydriasis [Not Recovered/Not Resolved]

NARRATIVE: CASE EVENT DATE: 20190517
